FAERS Safety Report 10381468 (Version 1)
Quarter: 2014Q1

REPORT INFORMATION
  Report Type: Spontaneous
  Country: US (occurrence: None)
  Receive Date: 20140306
  Receipt Date: 20140306
  Transmission Date: 20141002
  Serious: Yes (Hospitalization, Other)
  Sender: FDA-Public Use
  Company Number: 163-21880-13040573

PATIENT
  Age: 70 Year
  Sex: Female

DRUGS (20)
  1. REVLIMID (LENALIDOMIDE) (25 MILLIGRAM, CAPSULES) [Suspect]
     Indication: PLASMA CELL MYELOMA
     Route: 048
     Dates: start: 20120501
  2. ADVAIR DISKUS [Concomitant]
  3. AMBIEN (ZOLPIDEM TARTRATE) [Concomitant]
  4. ASPIRINE (ACETYLSALICYLIC ACID) [Concomitant]
  5. ATENOLOL [Concomitant]
  6. BUSPAR (BUSPIRONE HYDROCHLORIDE) [Concomitant]
  7. CALCIUM [Concomitant]
  8. COUMADIN (WARFARIN SODIUM) [Concomitant]
  9. DEXAMETHASONE [Concomitant]
  10. LASIX (FUROSEMIDE) [Concomitant]
  11. LEXAPRO (ESCITALOPRAM OXALATE) [Concomitant]
  12. LIPITOR (ATORVASTATIN) [Concomitant]
  13. MULTIVITAMINS [Concomitant]
  14. NASACORT (TRIAMCINOLONE ACETONIDE) [Concomitant]
  15. PERCOCET (OXYCOCET) [Concomitant]
  16. PREVACID (LANSOPRAZOLE) [Concomitant]
  17. PROCHLORPERAZINE [Concomitant]
  18. PROVENTIL (SALBUTAMOL) [Concomitant]
  19. SENNA-S (COLOXYL WITH SENNA) [Concomitant]
  20. ZOMETA (ZOLEDRONIC ACID) [Concomitant]

REACTIONS (2)
  - Transient ischaemic attack [None]
  - Fatigue [None]
